FAERS Safety Report 12184877 (Version 1)
Quarter: 2016Q1

REPORT INFORMATION
  Report Type: Report from Study
  Country: US (occurrence: US)
  Receive Date: 20160316
  Receipt Date: 20160316
  Transmission Date: 20160526
  Serious: Yes (Hospitalization)
  Sender: FDA-Public Use
  Company Number: US-CELGENE-USA-2016031371

PATIENT

DRUGS (1)
  1. REVLIMID [Suspect]
     Active Substance: LENALIDOMIDE
     Indication: MANTLE CELL LYMPHOMA
     Route: 048

REACTIONS (3)
  - Gastrointestinal disorder [Unknown]
  - Rash [Unknown]
  - Neutropenia [Unknown]
